FAERS Safety Report 7036302-2 (Version None)
Quarter: 2010Q4

REPORT INFORMATION
  Report Type: 
  Country: None (occurrence: None)
  Receive Date: 20101008
  Receipt Date: 20100930
  Transmission Date: 20110411
  Serious: Yes (Hospitalization, Other)
  Sender: FDA-Public Use
  Company Number: US-ABBOTT-10P-163-0674964-00

PATIENT
  Sex: Male
  Weight: 72.64 kg

DRUGS (4)
  1. HUMIRA [Suspect]
     Indication: COLITIS ULCERATIVE
     Route: 058
     Dates: start: 20100402, end: 20100402
  2. HUMIRA [Suspect]
     Route: 058
     Dates: end: 20100701
  3. ENTOCORT EC [Concomitant]
     Indication: COLITIS ULCERATIVE
     Route: 048
     Dates: end: 20100915
  4. LIALDA [Concomitant]
     Indication: COLITIS ULCERATIVE
     Dates: end: 20100915

REACTIONS (8)
  - COLITIS ULCERATIVE [None]
  - DEHYDRATION [None]
  - DRUG INEFFECTIVE [None]
  - DYSPEPSIA [None]
  - FATIGUE [None]
  - HICCUPS [None]
  - VOMITING [None]
  - WEIGHT DECREASED [None]
